FAERS Safety Report 21207860 (Version 4)
Quarter: 2022Q3

REPORT INFORMATION
  Report Type: Spontaneous
  Country: US (occurrence: US)
  Receive Date: 20220812
  Receipt Date: 20220831
  Transmission Date: 20221026
  Serious: No
  Sender: FDA-Public Use
  Company Number: US-PFIZER INC-202201053807

PATIENT
  Age: 73 Year
  Sex: Female
  Weight: 87.54 kg

DRUGS (1)
  1. IBRANCE [Suspect]
     Active Substance: PALBOCICLIB
     Indication: Adenocarcinoma
     Dosage: 100 IU, CYCLIC (100 DOSE UNITS UNKNOWN ROUTE NOT SPECIFIED FOR 21 DAYS AND ONE WEEK OFF)

REACTIONS (2)
  - Chest pain [Not Recovered/Not Resolved]
  - Pain in extremity [Not Recovered/Not Resolved]
